FAERS Safety Report 10255784 (Version 1)
Quarter: 2014Q2

REPORT INFORMATION
  Report Type: Spontaneous
  Country: US (occurrence: None)
  Receive Date: 20140522
  Receipt Date: 20140522
  Transmission Date: 20141212
  Serious: No
  Sender: FDA-Public Use
  Company Number: 1000054061

PATIENT
  Age: 56 Year
  Sex: Female

DRUGS (5)
  1. TUDORZA PRESSAIR (ACLIDINIUM BROMIDE) (400 MICROGRAM, POWDER) [Suspect]
     Indication: ASTHMA
     Dosage: 800 UG (400 UG, 2 IN 1 D)?
     Route: 055
     Dates: start: 201401
  2. DALIRESP (ROFLUMILAST) (500 MICROGRAM, TABLETS) [Suspect]
     Indication: ASTHMA
     Dates: start: 201401
  3. SYNTHROID (LEVOTHYROXINE SODIUM) [Concomitant]
  4. FORADIL (FORMOTEROL FUMARATE) [Concomitant]
  5. PULMICORT (BUDESONIDE) [Concomitant]

REACTIONS (3)
  - Insomnia [None]
  - Muscle spasms [None]
  - Off label use [None]
